FAERS Safety Report 25147887 (Version 2)
Quarter: 2025Q3

REPORT INFORMATION
  Report Type: Spontaneous
  Country: US (occurrence: US)
  Receive Date: 20250402
  Receipt Date: 20250702
  Transmission Date: 20251021
  Serious: No
  Sender: ROCHE
  Company Number: US-ROCHE-10000245652

PATIENT
  Sex: Male

DRUGS (1)
  1. OCREVUS [Suspect]
     Active Substance: OCRELIZUMAB
     Indication: Multiple sclerosis
     Dosage: 300 MG/10 ML
     Route: 042
     Dates: start: 201905

REACTIONS (6)
  - Pain [Unknown]
  - Accident [Unknown]
  - Urinary incontinence [Unknown]
  - Disturbance in attention [Unknown]
  - Fatigue [Unknown]
  - Depressed level of consciousness [Unknown]
